FAERS Safety Report 8160409-X (Version None)
Quarter: 2012Q1

REPORT INFORMATION
  Report Type: 
  Country: None (occurrence: None)
  Receive Date: 20120223
  Receipt Date: 20120214
  Transmission Date: 20120608
  Serious: Yes (Hospitalization)
  Sender: FDA-Public Use
  Company Number: ID-JNJFOC-20120206817

PATIENT
  Sex: Female
  Weight: 51 kg

DRUGS (1)
  1. STELARA [Suspect]
     Indication: PSORIASIS
     Route: 058
     Dates: start: 20110824

REACTIONS (2)
  - TYPHOID FEVER [None]
  - DENGUE FEVER [None]
